FAERS Safety Report 6486556-6 (Version None)
Quarter: 2009Q4

REPORT INFORMATION
  Report Type: 
  Country: None (occurrence: None)
  Receive Date: 20091210
  Receipt Date: 20091208
  Transmission Date: 20100525
  Serious: Yes (Other)
  Sender: FDA-Public Use
  Company Number: JP-BRISTOL-MYERS SQUIBB COMPANY-14731020

PATIENT
  Age: 80 Year
  Sex: Male

DRUGS (3)
  1. TAXOL [Suspect]
     Indication: GASTRIC CANCER
     Dosage: ON DAY 1, 8, 15 STOPPED AND RESTARTED WITH DECREASED DOSE,DOSEREDUCED TO 50MG/M2
     Route: 041
  2. WARFARIN SODIUM [Interacting]
     Indication: ATRIAL FIBRILLATION
     Route: 048
  3. TS-1 [Concomitant]
     Indication: GASTRIC CANCER
     Route: 048

REACTIONS (3)
  - DRUG INTERACTION [None]
  - GINGIVAL BLEEDING [None]
  - PROTHROMBIN TIME RATIO INCREASED [None]
